FAERS Safety Report 8269002-1 (Version None)
Quarter: 2012Q2

REPORT INFORMATION
  Report Type: 
  Country: None (occurrence: None)
  Receive Date: 20120409
  Receipt Date: 20120321
  Transmission Date: 20120825
  Serious: Yes (Other)
  Sender: FDA-Public Use
  Company Number: US-PFIZER INC-2012074004

PATIENT
  Sex: Male
  Weight: 90.703 kg

DRUGS (1)
  1. LIPITOR [Suspect]
     Indication: CARDIAC DISORDER
     Dosage: 80 MG, 1X/DAY
     Route: 048
     Dates: end: 20120321

REACTIONS (1)
  - AMNESIA [None]
